FAERS Safety Report 8954270 (Version 1)
Quarter: 2012Q4

REPORT INFORMATION
  Report Type: 
  Country: GB (occurrence: GB)
  Receive Date: 20121207
  Receipt Date: 20121207
  Transmission Date: 20130627
  Serious: Yes (Hospitalization, Other)
  Sender: FDA-Public Use
  Company Number: GB-ROXANE LABORATORIES, INC.-2012-RO-02504RO

PATIENT
  Age: 75 Year
  Sex: Female

DRUGS (5)
  1. CITALOPRAM [Suspect]
  2. ONDANSETRON [Suspect]
     Indication: ANTIEMETIC SUPPORTIVE CARE
  3. TRAMADOL [Suspect]
  4. METHYLENE BLUE [Suspect]
     Indication: PARATHYROIDECTOMY
     Route: 042
  5. FENTANYL [Suspect]
     Indication: ANALGESIC THERAPY

REACTIONS (3)
  - Serotonin syndrome [Recovered/Resolved]
  - Pneumonia [Recovered/Resolved]
  - Restless legs syndrome [Recovered/Resolved]
